FAERS Safety Report 6681829-6 (Version None)
Quarter: 2010Q2

REPORT INFORMATION
  Report Type: 
  Country: None (occurrence: None)
  Receive Date: 20100414
  Receipt Date: 20100407
  Transmission Date: 20101027
  Serious: Yes (Hospitalization)
  Sender: FDA-Public Use
  Company Number: PHHO2010FR02968

PATIENT
  Sex: Male

DRUGS (7)
  1. NEORAL [Suspect]
     Indication: RENAL TRANSPLANT
     Dosage: 85
     Route: 048
     Dates: start: 20091103, end: 20100223
  2. CERTICAN [Suspect]
     Indication: RENAL TRANSPLANT
     Dosage: 1.5 MG, BID
     Route: 048
     Dates: start: 20100215, end: 20100226
  3. CERTICAN [Suspect]
     Dosage: NO TREATMENT
     Dates: start: 20100227, end: 20100308
  4. CERTICAN [Suspect]
     Dosage: UNK
     Route: 048
     Dates: start: 20100310
  5. MYCOPHENOLIC ACID [Suspect]
     Indication: RENAL TRANSPLANT
     Dosage: UNK
     Route: 048
     Dates: start: 20091103, end: 20100221
  6. MYCOPHENOLIC ACID [Suspect]
     Dosage: NO TREATMENT
     Dates: start: 20100222, end: 20100308
  7. SOLUPRED [Concomitant]
     Indication: RENAL TRANSPLANT
     Dosage: UNK
     Route: 048
     Dates: start: 20091103

REACTIONS (2)
  - NEUTROPENIA [None]
  - PNEUMOCYSTIS JIROVECI PNEUMONIA [None]
